FAERS Safety Report 25961814 (Version 1)
Quarter: 2025Q4

REPORT INFORMATION
  Report Type: Spontaneous
  Country: EU (occurrence: EU)
  Receive Date: 20251027
  Receipt Date: 20251027
  Transmission Date: 20260117
  Serious: Yes (Other)
  Sender: AUROBINDO
  Company Number: EU-AFSSAPS-BS2025000720

PATIENT
  Sex: Male

DRUGS (1)
  1. CIPROFLOXACIN [Suspect]
     Active Substance: CIPROFLOXACIN
     Indication: Urinary tract infection
     Dosage: 500 MILLIGRAM, TWO TIMES A DAY
     Route: 048
     Dates: start: 20190820, end: 20190821

REACTIONS (14)
  - Tendonitis [Recovering/Resolving]
  - Muscle contractions involuntary [Not Recovered/Not Resolved]
  - Paraesthesia [Not Recovered/Not Resolved]
  - Bone pain [Not Recovered/Not Resolved]
  - Arthralgia [Not Recovered/Not Resolved]
  - Vision blurred [Recovering/Resolving]
  - Brain fog [Recovered/Resolved]
  - Muscular weakness [Recovering/Resolving]
  - Palpitations [Recovered/Resolved]
  - Alopecia [Recovered/Resolved]
  - Papule [Recovered/Resolved]
  - Joint noise [Not Recovered/Not Resolved]
  - Mouth haemorrhage [Not Recovered/Not Resolved]
  - Neuralgia [Not Recovered/Not Resolved]

NARRATIVE: CASE EVENT DATE: 20190101
